FAERS Safety Report 5218551-9 (Version None)
Quarter: 2006Q4

REPORT INFORMATION
  Report Type: 
  Country: None (occurrence: None)
  Receive Date: 20061121
  Receipt Date: 20061012
  Transmission Date: 20070319
  Serious: No
  Sender: FDA-Public Use
  Company Number: TPA2006A01810

PATIENT
  Age: 46 Year
  Sex: Male
  Weight: 63.5036 kg

DRUGS (3)
  1. ROZEREM [Suspect]
     Indication: INSOMNIA
     Dosage: 8 MG, HS, PER ORAL; 16 MG, HS, PER ORAL
     Route: 048
     Dates: start: 20061009, end: 20061009
  2. ROZEREM [Suspect]
     Indication: INSOMNIA
     Dosage: 8 MG, HS, PER ORAL; 16 MG, HS, PER ORAL
     Route: 048
     Dates: start: 20061010
  3. MULTIVITAMIN [Concomitant]

REACTIONS (4)
  - EARLY MORNING AWAKENING [None]
  - MIDDLE INSOMNIA [None]
  - PRESCRIBED OVERDOSE [None]
  - SOMNOLENCE [None]
